FAERS Safety Report 6698678-5 (Version None)
Quarter: 2010Q2

REPORT INFORMATION
  Report Type: 
  Country: None (occurrence: None)
  Receive Date: 20100427
  Receipt Date: 20091202
  Transmission Date: 20101027
  Serious: No
  Sender: FDA-Public Use
  Company Number: US-ASTRAZENECA-2009SE30016

PATIENT
  Age: 68 Year
  Sex: Female
  Weight: 58.1 kg

DRUGS (2)
  1. ZOMIG [Suspect]
     Dates: start: 20010101
  2. PAXIL [Concomitant]

REACTIONS (1)
  - COELIAC DISEASE [None]
